FAERS Safety Report 6518109-5 (Version None)
Quarter: 2009Q4

REPORT INFORMATION
  Report Type: 
  Country: None (occurrence: None)
  Receive Date: 20091223
  Receipt Date: 20091223
  Transmission Date: 20100525
  Serious: Yes (Hospitalization)
  Sender: FDA-Public Use
  Company Number: None

PATIENT
  Sex: Male
  Weight: 66.4 kg

DRUGS (4)
  1. METHOTREXATE [Suspect]
     Dosage: 825 MG
     Dates: end: 20091207
  2. ONCASPAR [Suspect]
     Dosage: 4500 IU
     Dates: end: 20091118
  3. VINCRISTINE SULFATE [Suspect]
     Dosage: 6 MG
     Dates: end: 20091207
  4. BACTRIM [Concomitant]

REACTIONS (13)
  - ABDOMINAL PAIN [None]
  - BACK PAIN [None]
  - BLOOD CALCIUM DECREASED [None]
  - BLOOD CREATININE INCREASED [None]
  - BLOOD PHOSPHORUS INCREASED [None]
  - BLOOD UREA INCREASED [None]
  - BLOOD URIC ACID INCREASED [None]
  - CONDITION AGGRAVATED [None]
  - HEADACHE [None]
  - OROPHARYNGEAL PAIN [None]
  - PHOTOPHOBIA [None]
  - PYREXIA [None]
  - RENAL FAILURE [None]
